FAERS Safety Report 15429630 (Version 1)
Quarter: 2018Q3

REPORT INFORMATION
  Report Type: Report from Study
  Country: BR (occurrence: BR)
  Receive Date: 20180926
  Receipt Date: 20180926
  Transmission Date: 20181010
  Serious: Yes (Other)
  Sender: FDA-Public Use
  Company Number: BR-SA-2018SA258011

PATIENT
  Age: 72 Year
  Sex: Male
  Weight: 95 kg

DRUGS (1)
  1. INSULIN GLARGINE [Suspect]
     Active Substance: INSULIN GLARGINE
     Indication: TYPE 2 DIABETES MELLITUS
     Dosage: 40 IU, QD
     Route: 058
     Dates: start: 20060911

REACTIONS (5)
  - Neuropathic arthropathy [Recovered/Resolved]
  - Product use issue [Unknown]
  - Fracture [Recovered/Resolved]
  - Injection site pain [Unknown]
  - Hypoglycaemia [Unknown]

NARRATIVE: CASE EVENT DATE: 20180911
